FAERS Safety Report 17761096 (Version 1)
Quarter: 2020Q2

REPORT INFORMATION
  Report Type: Spontaneous
  Country: US (occurrence: US)
  Receive Date: 20200508
  Receipt Date: 20200508
  Transmission Date: 20200714
  Serious: Yes (Other)
  Sender: FDA-Public Use
  Company Number: US-PFIZER INC-2020182690

PATIENT
  Age: 84 Year
  Sex: Male
  Weight: 97.52 kg

DRUGS (2)
  1. EFFEXOR XR [Suspect]
     Active Substance: VENLAFAXINE HYDROCHLORIDE
     Indication: ANXIETY
     Dosage: 225MG(ONE GOOD ONE 75MG LEFT AND ONE OLD BOTTLE OF 150MG)(TAKES THREE 75MG CAPSULES BY MOUTH DAILY)
     Route: 048
  2. EFFEXOR XR [Suspect]
     Active Substance: VENLAFAXINE HYDROCHLORIDE
     Indication: BIPOLAR I DISORDER

REACTIONS (10)
  - Humerus fracture [Unknown]
  - Musculoskeletal chest pain [Unknown]
  - Type 2 diabetes mellitus [Unknown]
  - Facial bones fracture [Unknown]
  - Fall [Unknown]
  - Upper limb fracture [Unknown]
  - Overweight [Unknown]
  - Chronic obstructive pulmonary disease [Unknown]
  - Contusion [Unknown]
  - Expired product administered [Unknown]
